FAERS Safety Report 9364279 (Version 1)
Quarter: 2013Q2

REPORT INFORMATION
  Report Type: Report from Study
  Country: DE (occurrence: DE)
  Receive Date: 20130624
  Receipt Date: 20130624
  Transmission Date: 20140414
  Serious: Yes (Hospitalization)
  Sender: FDA-Public Use
  Company Number: DE-ABBOTT-13P-062-1105841-00

PATIENT
  Sex: Male

DRUGS (2)
  1. HUMIRA [Suspect]
     Indication: RHEUMATOID ARTHRITIS
     Route: 058
     Dates: start: 20101201, end: 20130609
  2. ANTIBIOTICS [Concomitant]
     Indication: PRODUCT USED FOR UNKNOWN INDICATION
     Dates: start: 20130417, end: 20130417

REACTIONS (5)
  - Catheter site inflammation [Unknown]
  - Prostate cancer [Not Recovered/Not Resolved]
  - Cystitis noninfective [Unknown]
  - Urinary tract obstruction [Unknown]
  - Haematuria [Recovering/Resolving]
